FAERS Safety Report 9610933 (Version 3)
Quarter: 2014Q4

REPORT INFORMATION
  Report Type: Spontaneous
  Country: BR (occurrence: BR)
  Receive Date: 20131009
  Receipt Date: 20141119
  Transmission Date: 20150529
  Serious: Yes (Other)
  Sender: FDA-Public Use
  Company Number: BR-009507513-1310BRA001099

PATIENT
  Age: 26 Year
  Sex: Female
  Weight: 57 kg

DRUGS (2)
  1. IMPLANON [Suspect]
     Active Substance: ETONOGESTREL
     Indication: CONTRACEPTION
     Dosage: UNK
     Route: 059
     Dates: start: 201003, end: 201303
  2. IMPLANON [Suspect]
     Active Substance: ETONOGESTREL
     Dosage: UNK
     Route: 059
     Dates: start: 201303

REACTIONS (14)
  - Menstruation irregular [Recovered/Resolved]
  - Seborrhoea [Recovering/Resolving]
  - Menstruation irregular [Recovered/Resolved]
  - Metrorrhagia [Recovered/Resolved]
  - Acne [Recovering/Resolving]
  - Amenorrhoea [Recovered/Resolved]
  - Dysmenorrhoea [Not Recovered/Not Resolved]
  - Sunburn [Not Recovered/Not Resolved]
  - Oesophagocardiomyotomy [Unknown]
  - Amenorrhoea [Recovered/Resolved]
  - Animal scratch [Not Recovered/Not Resolved]
  - Menstruation irregular [Recovered/Resolved]
  - Haemorrhage [Not Recovered/Not Resolved]
  - Peripheral swelling [Not Recovered/Not Resolved]

NARRATIVE: CASE EVENT DATE: 201303
